FAERS Safety Report 6849400-0 (Version None)
Quarter: 2010Q3

REPORT INFORMATION
  Report Type: 
  Country: None (occurrence: None)
  Receive Date: 20100716
  Receipt Date: 20100705
  Transmission Date: 20110219
  Serious: Yes (Other)
  Sender: FDA-Public Use
  Company Number: ES-ELI_LILLY_AND_COMPANY-ES201007000725

PATIENT
  Sex: Male

DRUGS (1)
  1. CYMBALTA [Suspect]
     Indication: ANXIETY
     Dosage: 60 D/F, DAILY (1/D)
     Route: 065

REACTIONS (4)
  - ABASIA [None]
  - ANXIETY [None]
  - DIZZINESS [None]
  - PAIN IN EXTREMITY [None]
